FAERS Safety Report 6646856-3 (Version None)
Quarter: 2010Q1

REPORT INFORMATION
  Report Type: 
  Country: None (occurrence: None)
  Receive Date: 20100323
  Receipt Date: 20100312
  Transmission Date: 20100710
  Serious: Yes (Hospitalization)
  Sender: FDA-Public Use
  Company Number: JP-PFIZER INC-2009247897

PATIENT
  Age: 56 Year
  Sex: Male
  Weight: 65.5 kg

DRUGS (5)
  1. SUNITINIB MALATE [Suspect]
     Indication: GASTROINTESTINAL STROMAL TUMOUR
     Dosage: 50 MG, 1X/DAY
     Route: 048
     Dates: start: 20080805
  2. FAMOTIDINE [Concomitant]
     Dosage: UNK
     Route: 048
  3. URSO 250 [Concomitant]
     Dosage: UNK
     Route: 048
  4. PREDNISOLONE [Concomitant]
     Dosage: UNK
     Route: 048
  5. JUVELA [Concomitant]
     Dosage: UNK

REACTIONS (5)
  - LEUKOPENIA [None]
  - MALAISE [None]
  - NEUTROPENIA [None]
  - NEUTROPHIL COUNT DECREASED [None]
  - THROMBOCYTOPENIA [None]
